FAERS Safety Report 11138928 (Version 2)
Quarter: 2015Q2

REPORT INFORMATION
  Report Type: Spontaneous
  Country: GB (occurrence: None)
  Receive Date: 20150522
  Receipt Date: 20150603
  Transmission Date: 20150821
  Serious: Yes (Death, Hospitalization)
  Sender: FDA-Public Use
  Company Number: AMAG201500378

PATIENT

DRUGS (2)
  1. RIENSO (FERUMOXYTOL) INJECTION [Suspect]
     Active Substance: FERUMOXYTOL
     Indication: IMAGING PROCEDURE
     Route: 042
     Dates: start: 20121204, end: 20121204
  2. BUSCOPAN [Suspect]
     Active Substance: BUTYLSCOPOLAMINE BROMIDE
     Indication: PRODUCT USED FOR UNKNOWN INDICATION
     Route: 042
     Dates: start: 20121204, end: 20121205

REACTIONS (3)
  - Atrial fibrillation [None]
  - Cardiac failure [None]
  - Atrioventricular block complete [None]

NARRATIVE: CASE EVENT DATE: 20150317
